FAERS Safety Report 9173759 (Version 1)
Quarter: 2013Q1

REPORT INFORMATION
  Report Type: Spontaneous
  Country: TR (occurrence: TR)
  Receive Date: 20130320
  Receipt Date: 20130320
  Transmission Date: 20140127
  Serious: Yes (Other)
  Sender: FDA-Public Use
  Company Number: TR-SANOFI-AVENTIS-2013SA026116

PATIENT
  Age: 81 Year
  Sex: Female
  Weight: 65 kg

DRUGS (5)
  1. LANTUS SOLOSTAR [Suspect]
     Indication: DIABETES MELLITUS
     Route: 058
     Dates: start: 20130223, end: 20130311
  2. HUMALOG [Concomitant]
     Indication: DIABETES MELLITUS
     Dates: start: 20130223
  3. MONOKET [Concomitant]
  4. PLAVIX [Concomitant]
  5. BELOC [Concomitant]

REACTIONS (3)
  - Near drowning [Recovered/Resolved]
  - Dyspnoea [Recovered/Resolved]
  - Hyperhidrosis [Recovered/Resolved]
